FAERS Safety Report 8138716 (Version 2)
Quarter: 2012Q4

REPORT INFORMATION
  Report Type: 
  Country: US (occurrence: US)
  Receive Date: 20110915
  Receipt Date: 20120927
  Transmission Date: 20130627
  Serious: Yes (Other)
  Sender: FDA-Public Use
  Company Number: US-US-EMD SERONO, INC.-7082195

PATIENT
  Age: 74 None
  Sex: Female
  Weight: 59 kg

DRUGS (2)
  1. REBIF [Suspect]
     Indication: SECONDARY PROGRESSIVE MULTIPLE SCLEROSIS
     Route: 058
     Dates: start: 20030103, end: 20120412
  2. AMINOPYRIDINE [Concomitant]
     Indication: MULTIPLE SCLEROSIS
     Dates: start: 201108, end: 201109

REACTIONS (3)
  - Transient ischaemic attack [Recovered/Resolved]
  - Contusion [Unknown]
  - Muscular weakness [Unknown]
